FAERS Safety Report 20210058 (Version 1)
Quarter: 2021Q4

REPORT INFORMATION
  Report Type: Other
  Country: US (occurrence: None)
  Receive Date: 20211221
  Receipt Date: 20211221
  Transmission Date: 20220303
  Serious: Yes (Other)
  Sender: FDA-Public Use
  Company Number: US-ROCHE-2980849

PATIENT
  Age: 4 Year
  Sex: Male
  Weight: 15.6 kg

DRUGS (10)
  1. XOLAIR [Suspect]
     Active Substance: OMALIZUMAB
     Indication: Product used for unknown indication
     Dosage: THE PARTICIPANT WAS RANDOMIZED TO SUBCUTANEOUS XOLAIR/ PLACEBO FOR XOLAIR EVERY 4 WEEKS AND RECEIVED
     Route: 058
     Dates: start: 20200602
  2. ALBUTEROL [Concomitant]
     Active Substance: ALBUTEROL
     Dosage: 180 MCG PRN STARTED 21-OCT-21, ONGOING
  3. ACETAMINOPHEN [Concomitant]
     Active Substance: ACETAMINOPHEN
     Dosage: 240 MCG PRN STARTED 3-OCT-21, STOPPED 3-OCT-21
  4. DIPHENHYDRAMINE [Concomitant]
     Active Substance: DIPHENHYDRAMINE
     Dosage: 1 PRN STARTED 23-SEP-21, STOPPED 23-SEP-21, 12.5 MG PRN STARTED 20-SEP-21, STOPPED 20-SEP-21, 12.5 M
  5. PHENYLEPHRINE [Concomitant]
     Active Substance: PHENYLEPHRINE HYDROCHLORIDE
     Dosage: 2.5 MG PRN STARTED 3-AUG-21, STOPPED 4-AUG-21
  6. GUAIFENESIN [Concomitant]
     Active Substance: GUAIFENESIN
     Dosage: 100 MG PRN STARTED 3-AUG-21, STOPPED 4-AUG-21
  7. DEXTROMETHORPHAN [Concomitant]
     Active Substance: DEXTROMETHORPHAN
     Dosage: 5 MG PRN STARTED 3-AUG-21, STOPPED 4-AUG-21
  8. FLUTICASONE [Concomitant]
     Active Substance: FLUTICASONE
  9. FLUTICASONE [Concomitant]
     Active Substance: FLUTICASONE
  10. IBUPROFEN [Concomitant]
     Active Substance: IBUPROFEN

REACTIONS (1)
  - Anaphylactic reaction [Unknown]

NARRATIVE: CASE EVENT DATE: 20211206
